FAERS Safety Report 25061469 (Version 3)
Quarter: 2025Q2

REPORT INFORMATION
  Report Type: Report from Study
  Country: CA (occurrence: CA)
  Receive Date: 20250311
  Receipt Date: 20250525
  Transmission Date: 20250717
  Serious: Yes (Other)
  Sender: AMGEN
  Company Number: CA-AMGEN-CANSL2025022210

PATIENT
  Age: 78 Year
  Sex: Female

DRUGS (1)
  1. TARLATAMAB [Suspect]
     Active Substance: TARLATAMAB
     Indication: Small cell lung cancer
     Dosage: 10 MILLIGRAM, Q2WK
     Route: 065
     Dates: start: 20250123, end: 2025

REACTIONS (8)
  - Dyspnoea at rest [Unknown]
  - Haemoptysis [Unknown]
  - Chest pain [Unknown]
  - Dysphagia [Unknown]
  - Dyspnoea exertional [Unknown]
  - Back pain [Unknown]
  - Arthralgia [Unknown]
  - Drug ineffective [Unknown]

NARRATIVE: CASE EVENT DATE: 20250101
